FAERS Safety Report 21692949 (Version 1)
Quarter: 2022Q4

REPORT INFORMATION
  Report Type: Spontaneous
  Country: US (occurrence: US)
  Receive Date: 20221207
  Receipt Date: 20221207
  Transmission Date: 20230112
  Serious: No
  Sender: FDA-Public Use
  Company Number: US-BRISTOL-MYERS SQUIBB COMPANY-2022-148632

PATIENT
  Age: 96 Year
  Sex: Female
  Weight: 73.03 kg

DRUGS (1)
  1. ORENCIA [Suspect]
     Active Substance: ABATACEPT
     Indication: Product used for unknown indication
     Dosage: DOSE : 2ND DOSE;     FREQ : ONCE A WEEK?ROUTE OF ADMINISTRATION: SELF INJECTION
     Route: 065
     Dates: start: 20221128

REACTIONS (2)
  - Liquid product physical issue [Unknown]
  - Malaise [Unknown]

NARRATIVE: CASE EVENT DATE: 20221205
